FAERS Safety Report 19529666 (Version 2)
Quarter: 2023Q2

REPORT INFORMATION
  Report Type: Spontaneous
  Country: US (occurrence: US)
  Receive Date: 20210713
  Receipt Date: 20230606
  Transmission Date: 20230721
  Serious: Yes (Death, Other)
  Sender: FDA-Public Use
  Company Number: US-STRIDES ARCOLAB LIMITED-2021SP009043

PATIENT
  Age: 63 Year
  Sex: Female

DRUGS (5)
  1. RANITIDINE [Suspect]
     Active Substance: RANITIDINE
     Indication: Dyspepsia
     Dosage: UNK
     Route: 048
     Dates: start: 201702, end: 201909
  2. RANITIDINE [Suspect]
     Active Substance: RANITIDINE
     Indication: Gastrooesophageal reflux disease
     Dosage: UNK, RANITIDINE (ZANTAC) PRESCRIPTION
     Route: 065
     Dates: start: 2017, end: 2019
  3. RANITIDINE [Suspect]
     Active Substance: RANITIDINE
     Indication: Abdominal discomfort
     Dosage: UNK, RANITIDINE, PRESCRIPTION
     Route: 065
     Dates: start: 2017, end: 2019
  4. RANITIDINE [Suspect]
     Active Substance: RANITIDINE
     Indication: Hyperchlorhydria
     Dosage: UNK, RANITIDINE (ZANTAC) OVER THE COUNTER
     Route: 065
     Dates: start: 2017, end: 2019
  5. RANITIDINE [Suspect]
     Active Substance: RANITIDINE
     Dosage: UNK, RANITIDINE, OVER THE COUNTER
     Route: 065
     Dates: start: 2017, end: 2019

REACTIONS (2)
  - Death [Fatal]
  - Pancreatic carcinoma [Unknown]

NARRATIVE: CASE EVENT DATE: 20191201
